FAERS Safety Report 6150430-5 (Version None)
Quarter: 2009Q2

REPORT INFORMATION
  Report Type: 
  Country: None (occurrence: None)
  Receive Date: 20090409
  Receipt Date: 20090402
  Transmission Date: 20091009
  Serious: Yes (Other)
  Sender: FDA-Public Use
  Company Number: US-ALLERGAN-0904546US

PATIENT
  Sex: Female

DRUGS (2)
  1. BOTOX [Suspect]
     Indication: SKIN WRINKLING
     Dosage: 35 UNITS, SINGLE
     Route: 030
     Dates: start: 20090305, end: 20090305
  2. BOTOX [Suspect]
     Dosage: 10 UNITS, SINGLE
     Route: 030
     Dates: start: 20090319, end: 20090319

REACTIONS (6)
  - CHEST DISCOMFORT [None]
  - CHEST PAIN [None]
  - DYSPNOEA [None]
  - EYELID PTOSIS [None]
  - HEADACHE [None]
  - THROAT TIGHTNESS [None]
